FAERS Safety Report 15311807 (Version 1)
Quarter: 2018Q3

REPORT INFORMATION
  Report Type: Spontaneous
  Country: US (occurrence: US)
  Receive Date: 20180823
  Receipt Date: 20180823
  Transmission Date: 20181010
  Serious: Yes (Hospitalization)
  Sender: FDA-Public Use
  Company Number: US-BAYER-2018-158733

PATIENT
  Age: 75 Year
  Sex: Male
  Weight: 73.47 kg

DRUGS (12)
  1. BREO ELLIPTA [Concomitant]
     Active Substance: FLUTICASONE FUROATE\VILANTEROL TRIFENATATE
  2. CALCIUM [Concomitant]
     Active Substance: CALCIUM
  3. FLONASE [Concomitant]
     Active Substance: FLUTICASONE PROPIONATE
     Dosage: UNK
  4. OMEPRAZOLE. [Concomitant]
     Active Substance: OMEPRAZOLE
     Dosage: UNK
  5. NEXIUM [Concomitant]
     Active Substance: ESOMEPRAZOLE MAGNESIUM
  6. OSTEO BI?FLEX [Suspect]
     Active Substance: CHONDROITIN SULFATE A\GLUCOSAMINE
     Indication: NUTRITIONAL SUPPLEMENTATION
     Dosage: UNK
     Dates: end: 20180728
  7. FOLIC ACID. [Concomitant]
     Active Substance: FOLIC ACID
  8. FAMOTIDINE. [Concomitant]
     Active Substance: FAMOTIDINE
  9. BAYER LOW DOSE [Suspect]
     Active Substance: ASPIRIN
     Indication: CARDIAC DISORDER
     Dosage: UNK
     Route: 048
     Dates: start: 201804, end: 2018
  10. SPIRIVA [Concomitant]
     Active Substance: TIOTROPIUM BROMIDE MONOHYDRATE
     Dosage: UNK
  11. VITAMIN C [Concomitant]
     Active Substance: ASCORBIC ACID
  12. VITAMIN B12 [Concomitant]
     Active Substance: CYANOCOBALAMIN

REACTIONS (8)
  - Pallor [Unknown]
  - Fall [None]
  - Dizziness [Unknown]
  - Dyspepsia [Unknown]
  - Gait inability [Unknown]
  - Intentional overdose [None]
  - Gastrointestinal ulcer haemorrhage [Unknown]
  - Asthenia [Unknown]

NARRATIVE: CASE EVENT DATE: 201804
